FAERS Safety Report 9539043 (Version 2)
Quarter: 2013Q3

REPORT INFORMATION
  Report Type: Report from Study
  Country: CA (occurrence: CA)
  Receive Date: 20130920
  Receipt Date: 20130920
  Transmission Date: 20140515
  Serious: Yes (Other)
  Sender: FDA-Public Use
  Company Number: CA-UCBSA-090846

PATIENT
  Age: 55 Year
  Sex: Male
  Weight: 68 kg

DRUGS (7)
  1. CIMZIA [Suspect]
     Indication: RHEUMATOID ARTHRITIS
     Route: 058
     Dates: start: 20130329, end: 20130906
  2. CIMZIA [Suspect]
     Indication: RHEUMATOID ARTHRITIS
     Route: 058
     Dates: start: 20130215, end: 20130315
  3. METHOTREXATE [Concomitant]
     Indication: RHEUMATOID ARTHRITIS
     Route: 048
     Dates: start: 201108
  4. PLAQUENIL [Concomitant]
     Indication: RHEUMATOID ARTHRITIS
     Route: 048
     Dates: start: 1996
  5. SYNTHROID [Concomitant]
     Indication: HYPOTHYROIDISM
     Route: 048
  6. ACIDE FOLIQUE [Concomitant]
     Indication: RHEUMATOID ARTHRITIS
     Dosage: 5/7 JR
     Route: 048
     Dates: start: 201108
  7. TIAZAC [Concomitant]
     Indication: HYPERTENSION
     Route: 048

REACTIONS (4)
  - Psoriasis [Not Recovered/Not Resolved]
  - Eczema [Not Recovered/Not Resolved]
  - Rash pustular [Not Recovered/Not Resolved]
  - Generalised erythema [Not Recovered/Not Resolved]
